FAERS Safety Report 9167412 (Version 1)
Quarter: 2013Q1

REPORT INFORMATION
  Report Type: Spontaneous
  Country: US (occurrence: None)
  Receive Date: 20130304
  Receipt Date: 20130304
  Transmission Date: 20140127
  Serious: Yes (Other)
  Sender: FDA-Public Use
  Company Number: USA/USA/13/0028205

PATIENT
  Age: 56 Year
  Sex: Male

DRUGS (1)
  1. TENEX [Suspect]
     Indication: HUNTINGTON^S DISEASE

REACTIONS (5)
  - Drug ineffective [None]
  - Crying [None]
  - Insomnia [None]
  - Emotional disorder [None]
  - Product quality issue [None]
